FAERS Safety Report 8840377 (Version 3)
Quarter: 2013Q2

REPORT INFORMATION
  Report Type: Report from Study
  Country: JP (occurrence: JP)
  Receive Date: 20121015
  Receipt Date: 20130528
  Transmission Date: 20140414
  Serious: Yes (Other)
  Sender: FDA-Public Use
  Company Number: JP-VERTEX PHARMACEUTICAL INC.-AE-2012-009542

PATIENT
  Age: 61 Year
  Sex: Male

DRUGS (5)
  1. VX-950 (TELAPREVIR) [Suspect]
     Indication: CHRONIC HEPATITIS C
     Dosage: 2250 MG, QD
     Route: 048
     Dates: start: 20120420, end: 20120423
  2. VX-950 (TELAPREVIR) [Suspect]
     Dosage: 1500 MG, QD
     Route: 048
     Dates: start: 20120424, end: 20120712
  3. PEGINTRON [Suspect]
     Indication: CHRONIC HEPATITIS C
     Dosage: 100 ?G, QW
     Route: 058
     Dates: start: 20120420, end: 20130322
  4. RIBAVIRIN [Concomitant]
     Dosage: 800 MG, QD
     Route: 048
     Dates: start: 20120420, end: 20130322
  5. TALION [Concomitant]
     Dosage: 10 MG, QD
     Route: 048
     Dates: start: 20120420, end: 20120423

REACTIONS (1)
  - Rash [Recovered/Resolved]
